FAERS Safety Report 6287626-8 (Version None)
Quarter: 2009Q3

REPORT INFORMATION
  Report Type: 
  Country: None (occurrence: None)
  Receive Date: 20090727
  Receipt Date: 20090727
  Transmission Date: 20100115
  Serious: Yes (Life-Threatening, Hospitalization)
  Sender: FDA-Public Use
  Company Number: None

PATIENT
  Age: 68 Year
  Sex: Male
  Weight: 91.2 kg

DRUGS (2)
  1. NIFEDIPINE [Suspect]
     Indication: CARDIAC FAILURE CONGESTIVE
     Dosage: 90 MG EVERY DAY PO
     Route: 048
     Dates: start: 20090409, end: 20090412
  2. NIFEDIPINE [Suspect]
     Indication: HYPERTENSION
     Dosage: 90 MG EVERY DAY PO
     Route: 048
     Dates: start: 20090409, end: 20090412

REACTIONS (4)
  - BRADYCARDIA [None]
  - MYOCARDIAL INFARCTION [None]
  - OEDEMA PERIPHERAL [None]
  - RESPIRATORY DEPRESSION [None]
